FAERS Safety Report 11251458 (Version 1)
Quarter: 2015Q3

REPORT INFORMATION
  Report Type: Spontaneous
  Country: US (occurrence: US)
  Receive Date: 20150708
  Receipt Date: 20150708
  Transmission Date: 20151125
  Serious: No
  Sender: FDA-Public Use
  Company Number: US-ELI_LILLY_AND_COMPANY-US201109004657

PATIENT
  Age: 86 Year
  Sex: Male

DRUGS (9)
  1. ALPHA LIPOIC ACID [Concomitant]
     Active Substance: .ALPHA.-LIPOIC ACID
  2. PROTONIX [Concomitant]
     Active Substance: PANTOPRAZOLE SODIUM
  3. ARANESP [Concomitant]
     Active Substance: DARBEPOETIN ALFA
  4. KEFLEX [Concomitant]
     Active Substance: CEPHALEXIN
  5. FOLIC ACID. [Concomitant]
     Active Substance: FOLIC ACID
     Dosage: 1 MG, UNK
     Route: 048
     Dates: start: 20110725
  6. ADVAIR HFA [Concomitant]
     Active Substance: FLUTICASONE PROPIONATE\SALMETEROL XINAFOATE
  7. VITAMIN B12 [Concomitant]
     Active Substance: CYANOCOBALAMIN
     Dosage: 1000 UG, UNK
     Dates: start: 20110725
  8. ALIMTA [Suspect]
     Active Substance: PEMETREXED DISODIUM
     Indication: NON-SMALL CELL LUNG CANCER STAGE IIIB
     Dosage: 500 MG/M2, UNKNOWN
     Route: 042
     Dates: start: 20110808, end: 20110919
  9. DECADRON [Concomitant]
     Active Substance: DEXAMETHASONE
     Dosage: 4 MG, BID
     Route: 048
     Dates: start: 20110708

REACTIONS (3)
  - Pain in extremity [Recovering/Resolving]
  - Oedema peripheral [Recovering/Resolving]
  - Rash [Recovering/Resolving]

NARRATIVE: CASE EVENT DATE: 20110822
